FAERS Safety Report 5585869-X (Version None)
Quarter: 2008Q1

REPORT INFORMATION
  Report Type: 
  Country: None (occurrence: None)
  Receive Date: 20080109
  Receipt Date: 20070727
  Transmission Date: 20080703
  Serious: Yes (Disabling, Other)
  Sender: FDA-Public Use
  Company Number: GB-RANBAXY-2007RR-09295

PATIENT

DRUGS (2)
  1. RISPERIDONE [Suspect]
     Dosage: 8 MG, QD
     Route: 048
  2. DEKAPOTE [Suspect]
     Dosage: 2.5 MG, QD
     Route: 048

REACTIONS (1)
  - DIARRHOEA [None]
